FAERS Safety Report 5926335-9 (Version None)
Quarter: 2008Q4

REPORT INFORMATION
  Report Type: 
  Country: None (occurrence: None)
  Receive Date: 20081017
  Receipt Date: 20081006
  Transmission Date: 20090506
  Serious: Yes (Other)
  Sender: FDA-Public Use
  Company Number: S08-FRA-01795-01

PATIENT
  Age: 56 Year
  Sex: Female

DRUGS (2)
  1. ESCITALOPRAM [Suspect]
     Dosage: 15 MG (15 MG, 1 IN 1 D), ORAL
     Route: 048
  2. TEMESTA (LORAZEPAM) (2.5 MILLIGRAM, TABLETS) (LORAZEPAM) [Concomitant]

REACTIONS (1)
  - TUNNEL VISION [None]
